FAERS Safety Report 25772741 (Version 1)
Quarter: 2025Q3

REPORT INFORMATION
  Report Type: Spontaneous
  Country: EU (occurrence: EU)
  Receive Date: 20250908
  Receipt Date: 20250908
  Transmission Date: 20251020
  Serious: Yes (Other)
  Sender: SANDOZ
  Company Number: EU-NOVPHSZ-PHHY2019CZ191143

PATIENT
  Age: 45 Year
  Sex: Male

DRUGS (19)
  1. DECADRON (DEXAMETHASONE SODIUM PHOSPHATE) [Suspect]
     Active Substance: DEXAMETHASONE SODIUM PHOSPHATE
     Indication: Back pain
     Dosage: 8 MG, TID
     Route: 042
     Dates: start: 201712
  2. DECADRON (DEXAMETHASONE SODIUM PHOSPHATE) [Suspect]
     Active Substance: DEXAMETHASONE SODIUM PHOSPHATE
     Route: 042
     Dates: start: 201711
  3. METHOTREXATE [Suspect]
     Active Substance: METHOTREXATE
     Indication: Neurosarcoidosis
     Dosage: 20 MG, QD
     Route: 065
     Dates: start: 2018
  4. METHOTREXATE [Suspect]
     Active Substance: METHOTREXATE
     Indication: Pulmonary sarcoidosis
     Dosage: 30 MG, QD
     Route: 065
     Dates: start: 20180119
  5. METHOTREXATE [Suspect]
     Active Substance: METHOTREXATE
     Indication: Hypoacusis
     Route: 065
  6. METHOTREXATE [Suspect]
     Active Substance: METHOTREXATE
     Indication: Visual impairment
  7. MEDROL [Suspect]
     Active Substance: METHYLPREDNISOLONE
     Indication: Neurosarcoidosis
     Dosage: 16 MG, QD
     Route: 065
     Dates: start: 2018
  8. MEDROL [Suspect]
     Active Substance: METHYLPREDNISOLONE
     Indication: Pulmonary sarcoidosis
     Dosage: 32 MG, QD
     Route: 065
     Dates: start: 201712
  9. MEDROL [Suspect]
     Active Substance: METHYLPREDNISOLONE
     Route: 042
     Dates: start: 2018
  10. PREDNISONE [Suspect]
     Active Substance: PREDNISONE
     Indication: Pulmonary sarcoidosis
     Dosage: 10 MG, QD
     Route: 065
     Dates: start: 201712
  11. PREDNISONE [Suspect]
     Active Substance: PREDNISONE
     Indication: Neurosarcoidosis
     Dosage: 60 MG, QD
     Route: 065
     Dates: start: 2018
  12. PREDNISONE [Suspect]
     Active Substance: PREDNISONE
     Indication: Back pain
     Route: 065
  13. SOLU-MEDROL [Suspect]
     Active Substance: METHYLPREDNISOLONE SODIUM SUCCINATE
     Indication: Pulmonary sarcoidosis
     Route: 042
  14. SOLU-MEDROL [Suspect]
     Active Substance: METHYLPREDNISOLONE SODIUM SUCCINATE
     Indication: Neurosarcoidosis
  15. FENTANYL [Concomitant]
     Active Substance: FENTANYL
     Indication: Back pain
     Dosage: 50 UG, Q72H
     Route: 065
     Dates: start: 20171215
  16. FENTANYL [Concomitant]
     Active Substance: FENTANYL
     Indication: Pain
  17. ACYCLOVIR [Concomitant]
     Active Substance: ACYCLOVIR
     Indication: Antiviral treatment
     Route: 042
  18. IBUPROFEN [Concomitant]
     Active Substance: IBUPROFEN
     Indication: Back pain
     Route: 065
  19. MANNITOL [Concomitant]
     Active Substance: MANNITOL
     Indication: Product used for unknown indication
     Route: 042

REACTIONS (5)
  - Cataract [Recovering/Resolving]
  - Visual impairment [Recovering/Resolving]
  - Back pain [Recovered/Resolved]
  - Product use in unapproved indication [Unknown]
  - Therapeutic response decreased [Unknown]

NARRATIVE: CASE EVENT DATE: 20180101
